FAERS Safety Report 12372375 (Version 1)
Quarter: 2016Q2

REPORT INFORMATION
  Report Type: Spontaneous
  Country: US (occurrence: US)
  Receive Date: 20160516
  Receipt Date: 20160516
  Transmission Date: 20160815
  Serious: No
  Sender: FDA-Public Use
  Company Number: US-ASTRAZENECA-2016SE42003

PATIENT
  Sex: Female

DRUGS (3)
  1. METFORMIN [Concomitant]
     Active Substance: METFORMIN HYDROCHLORIDE
  2. BYETTA [Suspect]
     Active Substance: EXENATIDE
     Route: 065
  3. BYDUREON [Suspect]
     Active Substance: EXENATIDE
     Dosage: ONCE A WEEK
     Route: 058
     Dates: start: 20160418

REACTIONS (1)
  - Diabetes mellitus inadequate control [Not Recovered/Not Resolved]
